FAERS Safety Report 10308019 (Version 1)
Quarter: 2014Q3

REPORT INFORMATION
  Report Type: Spontaneous
  Country: GB (occurrence: GB)
  Receive Date: 20140716
  Receipt Date: 20140716
  Transmission Date: 20150326
  Serious: Yes (Hospitalization)
  Sender: FDA-Public Use
  Company Number: GB-MYLANLABS-2014S1015783

PATIENT
  Age: 75 Year
  Sex: Female
  Weight: 73 kg

DRUGS (8)
  1. RAMIPRIL. [Concomitant]
     Active Substance: RAMIPRIL
     Dates: start: 20140312, end: 20140617
  2. CETIRIZINE [Concomitant]
     Active Substance: CETIRIZINE HYDROCHLORIDE
     Dates: start: 20140519, end: 20140618
  3. ATORVASTATIN [Concomitant]
     Active Substance: ATORVASTATIN
     Dates: start: 20140312, end: 20140617
  4. ASPIRIN. [Concomitant]
     Active Substance: ASPIRIN
     Dates: start: 20140312, end: 20140617
  5. BISOPROLOL [Concomitant]
     Active Substance: BISOPROLOL
     Dates: start: 20140312, end: 20140617
  6. COCODAMOL [Concomitant]
     Active Substance: ACETAMINOPHEN\CODEINE PHOSPHATE
     Dates: start: 20140312, end: 20140617
  7. LANSOPRAZOLE. [Suspect]
     Active Substance: LANSOPRAZOLE
  8. QUININE [Concomitant]
     Active Substance: QUININE
     Dates: start: 20140410, end: 20140521

REACTIONS (1)
  - Hepatitis [Recovered/Resolved]

NARRATIVE: CASE EVENT DATE: 20140604
